FAERS Safety Report 5128358-9 (Version None)
Quarter: 2006Q4

REPORT INFORMATION
  Report Type: 
  Country: None (occurrence: None)
  Receive Date: 20061017
  Receipt Date: 20061006
  Transmission Date: 20070319
  Serious: Yes (Death, Hospitalization)
  Sender: FDA-Public Use
  Company Number: JP-JNJFOC-20061002502

PATIENT
  Age: 75 Year
  Sex: Male

DRUGS (2)
  1. LEUSTATIN [Suspect]
     Indication: B-CELL LYMPHOMA
     Route: 042
  2. NOVANTRONE [Suspect]
     Indication: B-CELL LYMPHOMA

REACTIONS (9)
  - ANAEMIA [None]
  - B-CELL LYMPHOMA [None]
  - CYSTITIS HAEMORRHAGIC [None]
  - HERPES ZOSTER [None]
  - LYMPHOCYTE COUNT DECREASED [None]
  - NAUSEA [None]
  - NEUTROPHIL COUNT DECREASED [None]
  - PLATELET COUNT DECREASED [None]
  - PNEUMOCYSTIS JIROVECI PNEUMONIA [None]
